FAERS Safety Report 10171010 (Version 2)
Quarter: 2014Q2

REPORT INFORMATION
  Report Type: Spontaneous
  Country: FR (occurrence: FR)
  Receive Date: 20140514
  Receipt Date: 20140627
  Transmission Date: 20141212
  Serious: Yes (Other)
  Sender: FDA-Public Use
  Company Number: FR-ASTELLAS-2014EU005198

PATIENT
  Sex: 0

DRUGS (1)
  1. PROGRAF [Suspect]
     Indication: RENAL TRANSPLANT
     Route: 065

REACTIONS (4)
  - Renal impairment [Unknown]
  - Blood creatinine abnormal [Unknown]
  - Renal impairment [Unknown]
  - Drug level below therapeutic [Unknown]
